FAERS Safety Report 5017493-1 (Version None)
Quarter: 2006Q2

REPORT INFORMATION
  Report Type: 
  Country: None (occurrence: None)
  Receive Date: 20060601
  Receipt Date: 20060601
  Transmission Date: 20061013
  Serious: No
  Sender: FDA-Public Use
  Company Number: None

PATIENT
  Sex: Female

DRUGS (4)
  1. BENICAR [Suspect]
     Indication: HYPERTENSION
     Dosage: ONE PO QD
     Route: 048
  2. ZETIA [Suspect]
     Indication: HYPERTENSION
     Dosage: ONE PO QD
     Route: 048
  3. HYZAAR [Suspect]
     Dosage: ONE PO QD
     Route: 048
  4. DIOVAN [Suspect]
     Dosage: ONE PO QD
     Route: 048

REACTIONS (5)
  - BLOOD PRESSURE INCREASED [None]
  - HIGH DENSITY LIPOPROTEIN DECREASED [None]
  - NEPHROLITHIASIS [None]
  - OESOPHAGEAL HAEMORRHAGE [None]
  - SINUS DISORDER [None]
